FAERS Safety Report 11253960 (Version 1)
Quarter: 2015Q3

REPORT INFORMATION
  Report Type: Spontaneous
  Country: US (occurrence: US)
  Receive Date: 20150709
  Receipt Date: 20150709
  Transmission Date: 20151125
  Serious: No
  Sender: FDA-Public Use
  Company Number: US-BIOGENIDEC-2015BI094796

PATIENT
  Age: 37 Year
  Sex: Male

DRUGS (1)
  1. AVONEX [Suspect]
     Active Substance: INTERFERON BETA-1A
     Indication: MULTIPLE SCLEROSIS
     Route: 030
     Dates: start: 200309

REACTIONS (7)
  - Speech disorder [Unknown]
  - Headache [Unknown]
  - Arthralgia [Unknown]
  - Intraocular pressure increased [Unknown]
  - Nasopharyngitis [Unknown]
  - Chills [Unknown]
  - Muscle spasms [Unknown]
